FAERS Safety Report 16351523 (Version 2)
Quarter: 2020Q2

REPORT INFORMATION
  Report Type: Spontaneous
  Country: FI (occurrence: FI)
  Receive Date: 20190524
  Receipt Date: 20200506
  Transmission Date: 20200713
  Serious: Yes (Other)
  Sender: FDA-Public Use
  Company Number: FI-SUN PHARMACEUTICAL INDUSTRIES LTD-2019RR-201432

PATIENT
  Age: 61 Year
  Sex: Male

DRUGS (2)
  1. PRIMASPAN 100 MG [Concomitant]
     Active Substance: ASPIRIN
     Indication: ANTICOAGULANT THERAPY
     Dosage: 1 DOSAGE FORM, QD
     Route: 048
     Dates: start: 201812
  2. ATORVASTATIN ORION [Suspect]
     Active Substance: ATORVASTATIN CALCIUM
     Indication: BLOOD CHOLESTEROL
     Dosage: IN THE MORNING, STRENGHT: 40 MILLIGRAM
     Route: 048
     Dates: start: 20190122, end: 20190124

REACTIONS (14)
  - Fine motor skill dysfunction [Not Recovered/Not Resolved]
  - Arthralgia [Recovering/Resolving]
  - Chest pain [Recovering/Resolving]
  - Musculoskeletal stiffness [Recovering/Resolving]
  - Impaired driving ability [Not Recovered/Not Resolved]
  - Weight decreased [Unknown]
  - Movement disorder [Unknown]
  - Joint stiffness [Recovering/Resolving]
  - Cardiac disorder [Not Recovered/Not Resolved]
  - Pain in extremity [Recovering/Resolving]
  - Hypoaesthesia [Recovering/Resolving]
  - Asthenia [Not Recovered/Not Resolved]
  - Musculoskeletal pain [Recovering/Resolving]
  - Muscle spasms [Recovered/Resolved]

NARRATIVE: CASE EVENT DATE: 201901
